FAERS Safety Report 25361222 (Version 2)
Quarter: 2025Q4

REPORT INFORMATION
  Report Type: Report from Study
  Country: CA (occurrence: CA)
  Receive Date: 20250527
  Receipt Date: 20251113
  Transmission Date: 20260117
  Serious: Yes (Other)
  Sender: BIOCON
  Company Number: CA-BIOCON BIOLOGICS LIMITED-BBL2024007999

PATIENT

DRUGS (3)
  1. HULIO [Suspect]
     Active Substance: ADALIMUMAB-FKJP
     Indication: Rheumatoid arthritis
     Dosage: UNK
     Route: 065
  2. HULIO [Suspect]
     Active Substance: ADALIMUMAB-FKJP
     Dosage: 40 MG, QWEEK
     Route: 058
     Dates: start: 20240621
  3. HULIO [Suspect]
     Active Substance: ADALIMUMAB-FKJP
     Dosage: UNK
     Route: 058

REACTIONS (18)
  - Pneumonia [Unknown]
  - Nasal congestion [Unknown]
  - Soft tissue swelling [Unknown]
  - Bone disorder [Unknown]
  - Ligament sprain [Unknown]
  - Pain [Unknown]
  - Arthralgia [Unknown]
  - Pruritus [Unknown]
  - Oedema [Unknown]
  - Injection site reaction [Unknown]
  - Pyrexia [Unknown]
  - Influenza [Unknown]
  - Injection site pruritus [Unknown]
  - Injection site pain [Unknown]
  - Off label use [Unknown]
  - Incorrect product administration duration [Unknown]
  - Incorrect dose administered [Unknown]
  - Device mechanical issue [Unknown]
